FAERS Safety Report 8305019-6 (Version None)
Quarter: 2012Q2

REPORT INFORMATION
  Report Type: 
  Country: None (occurrence: None)
  Receive Date: 20120423
  Receipt Date: 20120417
  Transmission Date: 20120825
  Serious: Yes (Other)
  Sender: FDA-Public Use
  Company Number: US-AMGEN-QUU431825

PATIENT
  Age: 57 Year
  Sex: Female
  Weight: 64.399 kg

DRUGS (5)
  1. METHOTREXATE [Concomitant]
     Dosage: 10 MG, UNK
     Route: 048
     Dates: start: 20080101
  2. ENBREL [Suspect]
     Indication: RHEUMATOID ARTHRITIS
     Dosage: 25 MG, 2 TIMES/WK
     Route: 058
     Dates: start: 20120223, end: 20120326
  3. SULFASALAZINE [Concomitant]
     Dosage: 500 MG, BID
     Route: 048
     Dates: start: 20080101
  4. PREDNISONE TAB [Concomitant]
     Indication: RHEUMATOID ARTHRITIS
     Dosage: 1 MG, UNK
     Route: 048
     Dates: start: 20080101
  5. HYDROXYCHLOROQUINE SULFATE [Concomitant]
     Dosage: 200 MG, BID
     Route: 048
     Dates: start: 20080101

REACTIONS (2)
  - HEPATITIS [None]
  - LIVER FUNCTION TEST ABNORMAL [None]
